FAERS Safety Report 22181397 (Version 1)
Quarter: 2023Q2

REPORT INFORMATION
  Report Type: Spontaneous
  Country: US (occurrence: None)
  Receive Date: 20230406
  Receipt Date: 20230406
  Transmission Date: 20230722
  Serious: Yes (unspecified)
  Sender: FDA-Public Use
  Company Number: None

PATIENT
  Age: 72 Year
  Sex: Male
  Weight: 87.3 kg

DRUGS (22)
  1. REVLIMID [Suspect]
     Active Substance: LENALIDOMIDE
     Indication: Plasma cell myeloma
     Dosage: FREQUENCY : DAILY;?
     Route: 048
     Dates: start: 20220512, end: 20230320
  2. albuterol sulfate 2mg/5mL [Concomitant]
  3. ALENDRONATE SODIUM [Concomitant]
     Active Substance: ALENDRONATE SODIUM
  4. AMLODIPINE [Concomitant]
     Active Substance: AMLODIPINE BESYLATE
  5. ASPIRIN [Concomitant]
     Active Substance: ASPIRIN
  6. BUMETANIDE [Concomitant]
     Active Substance: BUMETANIDE
  7. CARVEDILOL [Concomitant]
     Active Substance: CARVEDILOL
  8. DEXAMETHASONE [Concomitant]
     Active Substance: DEXAMETHASONE
  9. ELIQUIS [Concomitant]
     Active Substance: APIXABAN
  10. FINASTERIDE [Concomitant]
     Active Substance: FINASTERIDE
  11. HYDRALAZINE HYDROCHLORIDE [Concomitant]
     Active Substance: HYDRALAZINE HYDROCHLORIDE
  12. HYDROCODONE [Concomitant]
     Active Substance: HYDROCODONE
  13. LOSARTAN [Concomitant]
     Active Substance: LOSARTAN
  14. LYRICA [Concomitant]
     Active Substance: PREGABALIN
  15. OZEMPIC [Concomitant]
     Active Substance: SEMAGLUTIDE
  16. pantroprazole 40mg [Concomitant]
  17. PREGABALIN [Concomitant]
     Active Substance: PREGABALIN
  18. ROSUVASTATIN [Concomitant]
     Active Substance: ROSUVASTATIN
  19. SERTRALINE HYDROCHLORIDE [Concomitant]
     Active Substance: SERTRALINE HYDROCHLORIDE
  20. SIROLIMUS [Concomitant]
     Active Substance: SIROLIMUS
  21. testosterone 200mg/ml [Concomitant]
  22. toujeo 300 unit/ml [Concomitant]

REACTIONS (1)
  - Neutrophil count decreased [None]

NARRATIVE: CASE EVENT DATE: 20230320
